FAERS Safety Report 5934523-0 (Version None)
Quarter: 2008Q4

REPORT INFORMATION
  Report Type: 
  Country: None (occurrence: None)
  Receive Date: 20081029
  Receipt Date: 20081027
  Transmission Date: 20090506
  Serious: Yes (Hospitalization)
  Sender: FDA-Public Use
  Company Number: DE-WYE-G02448708

PATIENT
  Sex: Female
  Weight: 90 kg

DRUGS (9)
  1. VENLAFAXINE HCL [Suspect]
     Dosage: UNKNOWN DAILY DOSE
     Route: 048
  2. DIPIPERON [Suspect]
     Dosage: UNKNOWN DAILY DOSE
     Route: 048
  3. VALPROATE SODIUM [Suspect]
     Dosage: UNKNOWN DAILY DOSE
     Route: 048
  4. VIVINOX N [Suspect]
     Dosage: OVERDOSE AMOUNT CA. 10 TABLETS
     Route: 048
     Dates: start: 20081027, end: 20081027
  5. SEROQUEL [Suspect]
     Dosage: UNKNOWN DAILY DOSE
     Route: 048
  6. TRUXAL [Suspect]
     Dosage: UNKNOWN DAILY DOSE
     Route: 048
  7. DIPHENHYDRAMINE HYDROCHLORIDE [Suspect]
     Dosage: OVERDOSE AMOUNT CA. 10 TABLETS
     Route: 048
     Dates: start: 20081027, end: 20081027
  8. ASPIRIN [Suspect]
     Dosage: CA. 10 TABLETS (OVERDOSE AMOUNT CA. 5000 MG)
     Route: 048
     Dates: start: 20081027, end: 20081027
  9. ACETAMINOPHEN [Suspect]
     Dosage: CA. 10 TABLETS (OVERDOSE AMOUNT CA. 5000 MG )
     Route: 048
     Dates: start: 20081027, end: 20081027

REACTIONS (4)
  - GASTROINTESTINAL SOUNDS ABNORMAL [None]
  - INTENTIONAL OVERDOSE [None]
  - SOMNOLENCE [None]
  - SUICIDE ATTEMPT [None]
